FAERS Safety Report 21113469 (Version 1)
Quarter: 2022Q3

REPORT INFORMATION
  Report Type: Spontaneous
  Country: US (occurrence: US)
  Receive Date: 20220721
  Receipt Date: 20220721
  Transmission Date: 20221026
  Serious: No
  Sender: FDA-Public Use
  Company Number: US-PFIZER INC-202200966629

PATIENT
  Age: 36 Year
  Sex: Male

DRUGS (5)
  1. PAXLOVID [Suspect]
     Active Substance: NIRMATRELVIR\RITONAVIR
     Indication: COVID-19 treatment
     Dosage: UNK
     Dates: start: 20220628, end: 20220703
  2. HYDROCHLOROTHIAZIDE\LOSARTAN [Concomitant]
     Active Substance: HYDROCHLOROTHIAZIDE\LOSARTAN
     Dosage: 100MG/25MG
     Dates: start: 201001
  3. AMLODIPINE BESYLATE [Concomitant]
     Active Substance: AMLODIPINE BESYLATE
     Dosage: 10 MG
     Dates: start: 200601
  4. CHOLECALCIFEROL [Concomitant]
     Active Substance: CHOLECALCIFEROL
     Dosage: 2000 IU
     Dates: start: 202110
  5. MUCINEX [Concomitant]
     Active Substance: GUAIFENESIN
     Dosage: UNK
     Dates: start: 20220627, end: 20220714

REACTIONS (2)
  - Disease recurrence [Recovered/Resolved]
  - COVID-19 [Recovered/Resolved]

NARRATIVE: CASE EVENT DATE: 20220707
